FAERS Safety Report 13376231 (Version 1)
Quarter: 2017Q1

REPORT INFORMATION
  Report Type: Spontaneous
  Country: US (occurrence: US)
  Receive Date: 20170328
  Receipt Date: 20170328
  Transmission Date: 20170429
  Serious: No
  Sender: FDA-Public Use
  Company Number: US-BAYER-2017-058505

PATIENT
  Age: 56 Year
  Sex: Female
  Weight: 103 kg

DRUGS (1)
  1. MIRALAX [Suspect]
     Active Substance: POLYETHYLENE GLYCOL 3350
     Indication: GASTROINTESTINAL DISORDER
     Dosage: 1 PACKET IN WATER
     Route: 048
     Dates: start: 2016, end: 20170327

REACTIONS (1)
  - Dysgeusia [Unknown]
